FAERS Safety Report 4715393-5 (Version None)
Quarter: 2005Q3

REPORT INFORMATION
  Report Type: 
  Country: None (occurrence: None)
  Receive Date: 20050715
  Receipt Date: 20050711
  Transmission Date: 20060218
  Serious: Yes (Other)
  Sender: FDA-Public Use
  Company Number: US-ABBOTT-05P-163-0305383-00

PATIENT
  Age: 13 Year
  Sex: Female

DRUGS (2)
  1. ULTIVA [Suspect]
     Indication: ANALGESIC EFFECT
     Route: 024
     Dates: start: 20050701, end: 20050701
  2. ULTIVA [Suspect]
     Route: 042
     Dates: start: 20050701

REACTIONS (4)
  - DRUG ADMINISTRATION ERROR [None]
  - MEDICATION ERROR [None]
  - OVERDOSE [None]
  - TACHYCARDIA [None]
